FAERS Safety Report 8189194-2 (Version None)
Quarter: 2012Q1

REPORT INFORMATION
  Report Type: 
  Country: None (occurrence: None)
  Receive Date: 20120307
  Receipt Date: 20120301
  Transmission Date: 20120608
  Serious: Yes (Hospitalization)
  Sender: FDA-Public Use
  Company Number: US-VERTEX PHARMACEUTICALS INC.-AE-2012-002089

PATIENT
  Sex: Male
  Weight: 108.05 kg

DRUGS (2)
  1. INCIVEK [Suspect]
     Indication: HEPATITIS C
     Route: 048
     Dates: start: 20111126, end: 20120130
  2. PEGASYS [Concomitant]
     Indication: HEPATITIS C

REACTIONS (3)
  - PERICARDITIS [None]
  - MYOSITIS [None]
  - ERYTHEMA MULTIFORME [None]
